FAERS Safety Report 11322264 (Version 1)
Quarter: 2015Q3

REPORT INFORMATION
  Report Type: Spontaneous
  Country: FR (occurrence: FR)
  Receive Date: 20150729
  Receipt Date: 20150729
  Transmission Date: 20151125
  Serious: Yes (Hospitalization)
  Sender: FDA-Public Use
  Company Number: FR-BRISTOL-MYERS SQUIBB COMPANY-BMS-2015-048361

PATIENT
  Age: 62 Year
  Sex: Male

DRUGS (5)
  1. DOLIPRANE [Concomitant]
     Active Substance: ACETAMINOPHEN
     Indication: PRODUCT USED FOR UNKNOWN INDICATION
     Route: 065
  2. GENTAMICIN. [Concomitant]
     Active Substance: GENTAMICIN
     Indication: PROSTATITIS
     Route: 065
  3. COUMADINE [Suspect]
     Active Substance: WARFARIN SODIUM
     Indication: DEEP VEIN THROMBOSIS
     Dosage: 5 MG, QD
     Route: 048
  4. CIFLOX                             /00697201/ [Interacting]
     Active Substance: CIPROFLOXACIN
     Indication: PROSTATITIS
     Dosage: 500 MG, UNK
     Route: 048
     Dates: end: 20150517
  5. ROCEPHINE [Interacting]
     Active Substance: CEFTRIAXONE SODIUM
     Indication: PROSTATITIS
     Dosage: UNK
     Route: 048
     Dates: start: 201505, end: 201505

REACTIONS (4)
  - Hypoprothrombinaemia [Recovered/Resolved]
  - Overdose [Unknown]
  - Labelled drug-drug interaction medication error [Unknown]
  - International normalised ratio increased [Recovered/Resolved]

NARRATIVE: CASE EVENT DATE: 201504
